FAERS Safety Report 9795496 (Version 3)
Quarter: 2014Q1

REPORT INFORMATION
  Report Type: Spontaneous
  Country: US (occurrence: US)
  Receive Date: 20140103
  Receipt Date: 20140226
  Transmission Date: 20141002
  Serious: No
  Sender: FDA-Public Use
  Company Number: US-JNJFOC-20131217473

PATIENT
  Sex: Female
  Weight: 86.18 kg

DRUGS (19)
  1. SANDOZ FENTANYL TRANSDERMAL SYSTEM [Suspect]
     Indication: BACK PAIN
     Dosage: 100 UG/HR (NDC 0781-7244-55) PLUS 25 UG/HR
     Route: 062
  2. SANDOZ FENTANYL TRANSDERMAL SYSTEM [Suspect]
     Indication: NECK PAIN
     Dosage: 100 UG/HR (NDC 0781-7244-55) PLUS 25 UG/HR
     Route: 062
  3. SEROQUEL [Concomitant]
     Indication: DEPRESSION
     Dosage: IN THE MORNING
     Route: 048
  4. SEROQUEL [Concomitant]
     Indication: DEPRESSION
     Route: 048
  5. VISTARIL [Concomitant]
     Indication: ANXIETY
     Route: 048
  6. ROBAXIN [Concomitant]
     Indication: MUSCLE SPASMS
     Route: 048
  7. LEXAPRO [Concomitant]
     Indication: DEPRESSION
     Route: 048
  8. COREG [Concomitant]
     Indication: CARDIAC DISORDER
     Route: 048
  9. ZOCOR [Concomitant]
     Indication: BLOOD CHOLESTEROL
     Route: 048
  10. NITROGLYCERIN [Concomitant]
     Indication: CARDIAC DISORDER
     Route: 048
  11. SYNTHROID [Concomitant]
     Indication: THYROID DISORDER
     Route: 048
  12. SINGULAIR [Concomitant]
     Indication: MULTIPLE ALLERGIES
     Route: 048
  13. PRILOSEC [Concomitant]
     Indication: GASTROOESOPHAGEAL REFLUX DISEASE
     Route: 048
  14. CLARITIN [Concomitant]
     Indication: MULTIPLE ALLERGIES
     Route: 048
  15. POTASSIUM [Concomitant]
     Indication: BLOOD POTASSIUM
     Route: 048
  16. CELEBREX [Concomitant]
     Indication: ARTHRITIS
     Route: 048
  17. LASIX [Concomitant]
     Indication: FLUID RETENTION
     Route: 048
  18. EVISTA [Concomitant]
     Indication: HORMONE REPLACEMENT THERAPY
     Route: 048
  19. TRAZODONE [Concomitant]
     Indication: SLEEP DISORDER THERAPY
     Route: 048

REACTIONS (2)
  - Wrong technique in drug usage process [Unknown]
  - Drug ineffective [Unknown]
